FAERS Safety Report 5382186-8 (Version None)
Quarter: 2007Q3

REPORT INFORMATION
  Report Type: 
  Country: None (occurrence: None)
  Receive Date: 20070709
  Receipt Date: 20070625
  Transmission Date: 20080115
  Serious: Yes (Hospitalization)
  Sender: FDA-Public Use
  Company Number: US-ELI_LILLY_AND_COMPANY-US200706005731

PATIENT
  Age: 8 Year
  Sex: Male

DRUGS (3)
  1. STRATTERA [Suspect]
     Indication: ATTENTION DEFICIT/HYPERACTIVITY DISORDER
     Dosage: 25 MG, DAILY (1/D)
     Dates: start: 20070601, end: 20070601
  2. STRATTERA [Suspect]
     Dosage: 10 MG, UNK
     Dates: start: 20070601, end: 20070601
  3. STRATTERA [Suspect]
     Dosage: 18 MG, UNK

REACTIONS (3)
  - HALLUCINATION, AUDITORY [None]
  - MOOD ALTERED [None]
  - PSYCHOTIC DISORDER [None]
